FAERS Safety Report 6314064-1 (Version None)
Quarter: 2009Q3

REPORT INFORMATION
  Report Type: 
  Country: None (occurrence: None)
  Receive Date: 20090814
  Receipt Date: 20090730
  Transmission Date: 20100115
  Serious: Yes (Hospitalization)
  Sender: FDA-Public Use
  Company Number: 8049779

PATIENT
  Age: 53 Year
  Sex: Female

DRUGS (3)
  1. XYZAL [Suspect]
     Dosage: 5 MG /D PO
     Route: 048
     Dates: start: 20090505, end: 20090515
  2. HYPERIUM /00939801/ [Suspect]
     Dosage: 1 MG /D PO
     Route: 048
     Dates: start: 20090429, end: 20090516
  3. SOLUPRED /00016209/ [Suspect]
     Dosage: PO
     Route: 048
     Dates: start: 20090505, end: 20090515

REACTIONS (8)
  - CHEST PAIN [None]
  - ERYTHEMA [None]
  - EYELID OEDEMA [None]
  - INFLAMMATION [None]
  - JOINT SWELLING [None]
  - OEDEMA [None]
  - PLATELET COUNT INCREASED [None]
  - URTICARIA [None]
